FAERS Safety Report 21546053 (Version 1)
Quarter: 2022Q4

REPORT INFORMATION
  Report Type: Spontaneous
  Country: DE (occurrence: DE)
  Receive Date: 20221103
  Receipt Date: 20221103
  Transmission Date: 20230112
  Serious: Yes (Other)
  Sender: FDA-Public Use
  Company Number: DE-BAYER-2022A149671

PATIENT
  Age: 86 Year
  Sex: Male

DRUGS (6)
  1. XARELTO [Suspect]
     Active Substance: RIVAROXABAN
     Indication: Atrial fibrillation
     Dosage: 20 MG, QD
     Route: 048
  2. CELECOXIB [Suspect]
     Active Substance: CELECOXIB
     Dosage: 200 MG, QD
  3. CANDESARTAN [Concomitant]
     Active Substance: CANDESARTAN
  4. ATORVASTATIN [Concomitant]
     Active Substance: ATORVASTATIN
  5. METAMIZOLE [Concomitant]
     Active Substance: METAMIZOLE
     Dosage: 500 MG, PRN
  6. OXYCODON NALOXON MEPHA [Concomitant]
     Dosage: 20/10 MG /QD

REACTIONS (5)
  - Cerebral ventricular rupture [Unknown]
  - Basal ganglia haemorrhage [Unknown]
  - Loss of consciousness [Unknown]
  - Cerebrospinal fluid retention [Unknown]
  - Brain oedema [Unknown]
